FAERS Safety Report 7291271-5 (Version None)
Quarter: 2011Q1

REPORT INFORMATION
  Report Type: 
  Country: None (occurrence: None)
  Receive Date: 20110214
  Receipt Date: 20110113
  Transmission Date: 20110831
  Serious: No
  Sender: FDA-Public Use
  Company Number: CA-B.I. PHARMACEUTICALS,INC./RIDGEFIELD-2011-BP-02709BP

PATIENT
  Sex: Female

DRUGS (2)
  1. MIRAPEX [Suspect]
     Dates: start: 20020101, end: 20020901
  2. MIRAPEX [Suspect]
     Dates: start: 20041201, end: 20070501

REACTIONS (5)
  - DRUG ABUSE [None]
  - PATHOLOGICAL GAMBLING [None]
  - ALCOHOL ABUSE [None]
  - HYPERSEXUALITY [None]
  - COMPULSIVE SHOPPING [None]
